FAERS Safety Report 8374270-1 (Version None)
Quarter: 2012Q2

REPORT INFORMATION
  Report Type: 
  Country: None (occurrence: None)
  Receive Date: 20120521
  Receipt Date: 20120516
  Transmission Date: 20120825
  Serious: Yes (Other)
  Sender: FDA-Public Use
  Company Number: FR-PFIZER INC-2012118576

PATIENT
  Age: 69 Year
  Sex: Male
  Weight: 65 kg

DRUGS (2)
  1. ATORVASTATIN [Suspect]
     Dosage: 40 MG, 1X/DAY
     Route: 048
  2. GEMCITABINE [Concomitant]
     Dosage: 1000 MG/MA?, 6 COURSES FROM D1 TO D8
     Dates: start: 20111001, end: 20120126

REACTIONS (1)
  - HYPOCHOLESTEROLAEMIA [None]
